FAERS Safety Report 8696397 (Version 2)
Quarter: 2012Q4

REPORT INFORMATION
  Report Type: 
  Country: US (occurrence: US)
  Receive Date: 20120801
  Receipt Date: 20120828
  Transmission Date: 20130627
  Serious: No
  Sender: FDA-Public Use
  Company Number: US-009507513-1207USA002212

PATIENT

DRUGS (1)
  1. IMPLANON [Suspect]
     Indication: CONTRACEPTION
     Dosage: UNK, 1 rod
     Route: 059
     Dates: start: 20120309

REACTIONS (3)
  - Device deployment issue [Unknown]
  - Weight increased [Not Recovered/Not Resolved]
  - Metrorrhagia [Not Recovered/Not Resolved]
